FAERS Safety Report 5189144-7 (Version None)
Quarter: 2006Q4

REPORT INFORMATION
  Report Type: 
  Country: None (occurrence: None)
  Receive Date: 20061215
  Receipt Date: 20061129
  Transmission Date: 20070319
  Serious: Yes (Other)
  Sender: FDA-Public Use
  Company Number: 2006147260

PATIENT
  Sex: Female

DRUGS (2)
  1. CELEBREX [Suspect]
     Dosage: DAILY
     Dates: start: 19990602
  2. BEXTRA [Suspect]
     Dosage: DAILY
     Dates: start: 20031003

REACTIONS (1)
  - CEREBROVASCULAR ACCIDENT [None]
